FAERS Safety Report 7888799-3 (Version None)
Quarter: 2011Q4

REPORT INFORMATION
  Report Type: 
  Country: None (occurrence: None)
  Receive Date: 20111101
  Receipt Date: 20111014
  Transmission Date: 20120403
  Serious: Yes (Hospitalization, Other)
  Sender: FDA-Public Use
  Company Number: AUR-APL-2011-05619

PATIENT
  Age: 47 Year
  Sex: Female

DRUGS (3)
  1. CITALOPRAM HYDROBROMIDE [Suspect]
     Indication: PRODUCT USED FOR UNKNOWN INDICATION
  2. LAMOTRIGINE [Suspect]
     Indication: PRODUCT USED FOR UNKNOWN INDICATION
  3. DILTIAZEM HCL [Suspect]
     Indication: PRODUCT USED FOR UNKNOWN INDICATION
     Dosage: (25 DILTIAZEM ER (120 MG EACH)),ORAL
     Route: 048

REACTIONS (9)
  - BRADYCARDIA [None]
  - HAEMODIALYSIS [None]
  - CONVULSION [None]
  - PANCREATITIS ACUTE [None]
  - HYPOTENSION [None]
  - DEPRESSED LEVEL OF CONSCIOUSNESS [None]
  - OVERDOSE [None]
  - HYPERLIPIDAEMIA [None]
  - HEPATIC ENZYME INCREASED [None]
